FAERS Safety Report 15825700 (Version 2)
Quarter: 2019Q1

REPORT INFORMATION
  Report Type: Spontaneous
  Country: IT (occurrence: IT)
  Receive Date: 20190115
  Receipt Date: 20190116
  Transmission Date: 20190417
  Serious: Yes (Other)
  Sender: FDA-Public Use
  Company Number: IT-JNJFOC-20190112715

PATIENT
  Age: 66 Year
  Sex: Female
  Weight: 69 kg

DRUGS (1)
  1. CAELYX [Suspect]
     Active Substance: DOXORUBICIN HYDROCHLORIDE
     Indication: METAPLASTIC BREAST CARCINOMA
     Route: 042
     Dates: start: 20180826, end: 20180914

REACTIONS (1)
  - Skin toxicity [Unknown]

NARRATIVE: CASE EVENT DATE: 20180914
